FAERS Safety Report 10236562 (Version 4)
Quarter: 2015Q1

REPORT INFORMATION
  Report Type: Report from Study
  Country: US (occurrence: US)
  Receive Date: 20140613
  Receipt Date: 20150106
  Transmission Date: 20150720
  Serious: Yes (Hospitalization)
  Sender: FDA-Public Use
  Company Number: US-JNJFOC-20140608651

PATIENT
  Age: 51 Year
  Sex: Female
  Weight: 86.2 kg

DRUGS (16)
  1. IMBRUVICA [Suspect]
     Active Substance: IBRUTINIB
     Indication: CHRONIC LYMPHOCYTIC LEUKAEMIA
     Route: 048
     Dates: start: 20140213
  2. VALTREX [Concomitant]
     Active Substance: VALACYCLOVIR HYDROCHLORIDE
     Route: 048
  3. OMEPRAZOLE. [Concomitant]
     Active Substance: OMEPRAZOLE
     Route: 048
  4. HYDROCODONE BITARTRATE AND ACETAMINOPHEN [Concomitant]
     Active Substance: ACETAMINOPHEN\HYDROCODONE BITARTRATE
     Route: 048
  5. ALLOPURINOL. [Concomitant]
     Active Substance: ALLOPURINOL
     Route: 048
  6. ZOFRAN [Concomitant]
     Active Substance: ONDANSETRON HYDROCHLORIDE
     Indication: NAUSEA
     Route: 048
  7. TUSSIONEX PENNKINETIC [Concomitant]
     Active Substance: CHLORPHENIRAMINE\HYDROCODONE
     Dosage: AS NEEDED
     Route: 048
  8. EMLA (LIDOCAINE/PRILOCAINE) [Concomitant]
     Dosage: APPLY PRIOR TO PORT ACCESS PRN
  9. LEVAQUIN [Concomitant]
     Active Substance: LEVOFLOXACIN
     Route: 048
  10. STOOL SOFTENER [Concomitant]
     Active Substance: DOCUSATE CALCIUM
  11. FLUTICASONE [Concomitant]
     Active Substance: FLUTICASONE\FLUTICASONE PROPIONATE
     Dosage: 2 SPRAY IN EACH NOSTRIL DAILY
  12. UNSPECIFIED ROBITUSSIN [Concomitant]
     Active Substance: GUAIFENESIN
     Route: 048
  13. TYLENOL EXTRA STRENGTH [Concomitant]
     Active Substance: ACETAMINOPHEN
     Route: 048
  14. VENTOLIN [Concomitant]
     Active Substance: ALBUTEROL SULFATE
     Route: 055
  15. CLARITIN [Concomitant]
     Active Substance: LORATADINE
     Route: 048
  16. PSEUDOEPHEDRINE [Concomitant]
     Active Substance: PSEUDOEPHEDRINE
     Route: 048

REACTIONS (17)
  - Hypogammaglobulinaemia [Unknown]
  - Asthma [Unknown]
  - Pancytopenia [Unknown]
  - Malaise [Not Recovered/Not Resolved]
  - Thrombocytopenia [Unknown]
  - Oral herpes [Unknown]
  - Otitis media [Unknown]
  - Device related infection [Recovered/Resolved]
  - Lung infiltration [Unknown]
  - Bronchitis viral [Unknown]
  - Leukocytosis [Unknown]
  - Chronic kidney disease [Unknown]
  - Acute sinusitis [Unknown]
  - Anaemia [Unknown]
  - Gout [Unknown]
  - Lymphadenopathy [Unknown]
  - Arthralgia [Unknown]

NARRATIVE: CASE EVENT DATE: 2014
